FAERS Safety Report 21030086 (Version 1)
Quarter: 2022Q3

REPORT INFORMATION
  Report Type: Spontaneous
  Country: US (occurrence: None)
  Receive Date: 20220701
  Receipt Date: 20220701
  Transmission Date: 20221027
  Serious: No
  Sender: FDA-Public Use
  Company Number: US-ROCHE-2975330

PATIENT
  Age: 72 Year
  Sex: Female

DRUGS (9)
  1. ACTEMRA [Suspect]
     Active Substance: TOCILIZUMAB
     Indication: Giant cell arteritis
     Route: 058
     Dates: start: 2021
  2. ACTEMRA [Suspect]
     Active Substance: TOCILIZUMAB
  3. ACTEMRA [Suspect]
     Active Substance: TOCILIZUMAB
     Indication: Paralysis
     Dosage: STRENGTH:162 MG/ 0.9 ML
     Route: 058
     Dates: start: 202110
  4. ACTEMRA [Suspect]
     Active Substance: TOCILIZUMAB
  5. TEMAZEPAM [Concomitant]
     Active Substance: TEMAZEPAM
     Indication: Insomnia
     Dosage: TAKES AT NIGHT; STARTED ABOUT 15 YEARS AGO
     Route: 048
  6. OMEPRAZOLE [Concomitant]
     Active Substance: OMEPRAZOLE
     Dosage: STARTED ABOUT 8 YEARS AGO
     Route: 048
  7. AMLODIPINE [Concomitant]
     Active Substance: AMLODIPINE BESYLATE
     Indication: Giant cell arteritis
     Route: 048
     Dates: start: 202101
  8. MELOXICAM [Concomitant]
     Active Substance: MELOXICAM
     Indication: Giant cell arteritis
     Route: 048
     Dates: start: 202101
  9. LINZESS [Concomitant]
     Active Substance: LINACLOTIDE
     Dosage: STARTED ABOUT 2 YEARS AGO
     Route: 048

REACTIONS (5)
  - Inappropriate schedule of product administration [Unknown]
  - Product complaint [Unknown]
  - Off label use [Unknown]
  - Product administration error [Unknown]
  - Inflammation [Unknown]

NARRATIVE: CASE EVENT DATE: 20211201
